FAERS Safety Report 17735347 (Version 1)
Quarter: 2020Q2

REPORT INFORMATION
  Report Type: Spontaneous
  Country: ES (occurrence: ES)
  Receive Date: 20200501
  Receipt Date: 20200501
  Transmission Date: 20200714
  Serious: Yes (Other)
  Sender: FDA-Public Use
  Company Number: ES-SA-2020SA111372

PATIENT
  Age: 68 Year
  Sex: Female
  Weight: 57 kg

DRUGS (2)
  1. TOUJEO [Suspect]
     Active Substance: INSULIN GLARGINE
     Indication: TYPE 2 DIABETES MELLITUS
     Dosage: 18 IU
     Route: 058
     Dates: start: 201912
  2. JANUVIA [Suspect]
     Active Substance: SITAGLIPTIN PHOSPHATE
     Indication: TYPE 2 DIABETES MELLITUS
     Dosage: UNK
     Route: 048

REACTIONS (8)
  - Hyperhidrosis [Unknown]
  - Bone pain [Unknown]
  - Pain in extremity [Unknown]
  - Hyperglycaemia [Unknown]
  - Insomnia [Unknown]
  - Cerebrovascular accident [Unknown]
  - Asthenia [Unknown]
  - Diabetes mellitus inadequate control [Unknown]
